FAERS Safety Report 7101737-6 (Version None)
Quarter: 2010Q4

REPORT INFORMATION
  Report Type: 
  Country: None (occurrence: None)
  Receive Date: 20101115
  Receipt Date: 20101108
  Transmission Date: 20110411
  Serious: Yes (Other)
  Sender: FDA-Public Use
  Company Number: US-ROXANE LABORATORIES, INC.-2010-RO-01478RO

PATIENT
  Age: 46 Year
  Sex: Female

DRUGS (12)
  1. TORSEMIDE [Suspect]
     Indication: CARDIAC FAILURE
  2. DIGOXIN [Suspect]
     Indication: CARDIAC FAILURE
  3. PREDNISONE [Suspect]
     Indication: ASTHMA
  4. FLUTICASONE PROPIONATE [Suspect]
     Indication: ASTHMA
     Route: 055
  5. MILRINONE [Suspect]
     Indication: CARDIAC FAILURE
  6. SPIRONOLACTONE [Suspect]
     Indication: CARDIAC FAILURE
  7. SALMETEROL [Suspect]
     Indication: ASTHMA
     Route: 055
  8. MONTELUKAST [Suspect]
     Indication: ASTHMA
  9. ASPIRIN [Suspect]
     Indication: ANTICOAGULANT THERAPY
  10. CLOPIDOGREL [Suspect]
     Indication: ANTICOAGULANT THERAPY
  11. WARFARIN [Suspect]
     Indication: ANTICOAGULANT THERAPY
  12. HEPARIN [Suspect]
     Indication: THROMBOSIS IN DEVICE
     Route: 042

REACTIONS (2)
  - EOSINOPHILIC MYOCARDITIS [None]
  - THROMBOSIS IN DEVICE [None]
